FAERS Safety Report 25482267 (Version 2)
Quarter: 2025Q4

REPORT INFORMATION
  Report Type: Spontaneous
  Country: JP (occurrence: JP)
  Receive Date: 20250626
  Receipt Date: 20251130
  Transmission Date: 20260117
  Serious: Yes (Life-Threatening, Other)
  Sender: MERCK SHARP & DOHME LLC
  Company Number: JP-MSD-M2024-38399

PATIENT
  Age: 6 Decade
  Sex: Female

DRUGS (1)
  1. KEYTRUDA [Suspect]
     Active Substance: PEMBROLIZUMAB
     Indication: Cervix carcinoma stage IV
     Route: 041

REACTIONS (3)
  - Colitis [Recovered/Resolved]
  - Malignant neoplasm progression [Unknown]
  - Colitis [Not Recovered/Not Resolved]
